FAERS Safety Report 10601935 (Version 2)
Quarter: 2014Q4

REPORT INFORMATION
  Report Type: Spontaneous
  Country: US (occurrence: US)
  Receive Date: 20141124
  Receipt Date: 20141223
  Transmission Date: 20150529
  Serious: Yes (Hospitalization)
  Sender: FDA-Public Use
  Company Number: US-PFIZER INC-2014317847

PATIENT
  Age: 71 Year
  Sex: Female

DRUGS (1)
  1. ROBITUSSIN MEDI-SOOTHERS COUGH DM [Suspect]
     Active Substance: DEXTROMETHORPHAN HYDROBROMIDE\MENTHOL
     Indication: COUGH
     Dosage: 2 LOZENGES EVERY 4 HOURS

REACTIONS (1)
  - Drug ineffective [Recovered/Resolved]
